FAERS Safety Report 4303387-3 (Version None)
Quarter: 2004Q1

REPORT INFORMATION
  Report Type: 
  Country: None (occurrence: None)
  Receive Date: 20040223
  Receipt Date: 20040211
  Transmission Date: 20041129
  Serious: No
  Sender: FDA-Public Use
  Company Number: 04P-167-0250300-00

PATIENT
  Sex: Male

DRUGS (1)
  1. DEPAKOTE [Suspect]

REACTIONS (1)
  - CONSCIOUSNESS FLUCTUATING [None]
